FAERS Safety Report 23276456 (Version 1)
Quarter: 2023Q4

REPORT INFORMATION
  Report Type: Spontaneous
  Country: US (occurrence: None)
  Receive Date: 20231207
  Receipt Date: 20231207
  Transmission Date: 20240110
  Serious: Yes (Death)
  Sender: FDA-Public Use
  Company Number: None

PATIENT
  Age: 59 Year
  Sex: Male

DRUGS (14)
  1. LEUCOVORIN CALCIUM [Suspect]
     Active Substance: LEUCOVORIN CALCIUM
     Indication: Rectal cancer
     Dosage: FREQUENCY: EVERY 14 DAYS?
     Route: 042
     Dates: start: 202311
  2. LEUCOVORIN CALCIUM [Suspect]
     Active Substance: LEUCOVORIN CALCIUM
     Indication: Lung neoplasm malignant
  3. LEUCOVORIN CALCIUM [Suspect]
     Active Substance: LEUCOVORIN CALCIUM
     Indication: Bone cancer
  4. LEUCOVORIN CALCIUM [Suspect]
     Active Substance: LEUCOVORIN CALCIUM
     Indication: Metastases to liver
  5. LEUCOVORIN CALCIUM [Suspect]
     Active Substance: LEUCOVORIN CALCIUM
     Indication: Cholangiocarcinoma
  6. ZIRABEV [Suspect]
     Active Substance: BEVACIZUMAB-BVZR
     Indication: Rectal cancer
     Dosage: FREQUENCY : EVERY SECOND;?
     Route: 042
     Dates: start: 202310
  7. ZIRABEV [Suspect]
     Active Substance: BEVACIZUMAB-BVZR
     Indication: Bone cancer
  8. ZIRABEV [Suspect]
     Active Substance: BEVACIZUMAB-BVZR
     Indication: Metastases to liver
  9. ZIRABEV [Suspect]
     Active Substance: BEVACIZUMAB-BVZR
     Indication: Metastases to lung
  10. ZIRABEV [Suspect]
     Active Substance: BEVACIZUMAB-BVZR
     Indication: Cholangiocarcinoma
  11. CYRAMZA [Concomitant]
     Active Substance: RAMUCIRUMAB
  12. LOYSURF [Concomitant]
  13. IRINOTECAN HYDROCHLORIDE [Concomitant]
     Active Substance: IRINOTECAN HYDROCHLORIDE
  14. FLUOROURACIL [Concomitant]
     Active Substance: FLUOROURACIL

REACTIONS (1)
  - Disease progression [None]

NARRATIVE: CASE EVENT DATE: 20231119
